FAERS Safety Report 26188859 (Version 1)
Quarter: 2025Q4

REPORT INFORMATION
  Report Type: Spontaneous
  Country: US (occurrence: US)
  Receive Date: 20251222
  Receipt Date: 20251222
  Transmission Date: 20260118
  Serious: Yes (Other)
  Sender: DR REDDYS
  Company Number: US-DRL-USA-USA/2025/12/019684

PATIENT
  Age: 17 Year
  Sex: Male

DRUGS (2)
  1. DOXYCYCLINE [Suspect]
     Active Substance: DOXYCYCLINE
     Indication: Endocarditis
  2. RIFAMPIN [Concomitant]
     Active Substance: RIFAMPIN
     Indication: Endocarditis

REACTIONS (1)
  - Drug ineffective for unapproved indication [Unknown]
